FAERS Safety Report 7235436-7 (Version None)
Quarter: 2011Q1

REPORT INFORMATION
  Report Type: 
  Country: None (occurrence: None)
  Receive Date: 20110120
  Receipt Date: 20110113
  Transmission Date: 20110831
  Serious: Yes (Death, Other)
  Sender: FDA-Public Use
  Company Number: ES-JNJFOC-20110104175

PATIENT
  Sex: Female

DRUGS (4)
  1. YONDELIS [Suspect]
     Indication: PRODUCT USED FOR UNKNOWN INDICATION
     Dosage: CYCLE 2
     Route: 042
  2. CAELYX [Suspect]
     Dosage: CYCLE 1
     Route: 042
  3. YONDELIS [Suspect]
     Dosage: CYCLE 1
     Route: 042
  4. CAELYX [Suspect]
     Indication: PRODUCT USED FOR UNKNOWN INDICATION
     Dosage: CYCLE 2
     Route: 042

REACTIONS (2)
  - DEATH [None]
  - PANCYTOPENIA [None]
